FAERS Safety Report 14260886 (Version 2)
Quarter: 2017Q4

REPORT INFORMATION
  Report Type: Spontaneous
  Country: BR (occurrence: BR)
  Receive Date: 20171207
  Receipt Date: 20171221
  Transmission Date: 20180321
  Serious: Yes (Other)
  Sender: FDA-Public Use
  Company Number: BR-GILEAD-2017-0302945

PATIENT
  Age: 54 Year
  Sex: Male

DRUGS (2)
  1. SOVALDI [Suspect]
     Active Substance: SOFOSBUVIR
     Indication: HEPATITIS C
     Dosage: UNK
     Route: 065
  2. DACLATASVIR. [Concomitant]
     Active Substance: DACLATASVIR

REACTIONS (2)
  - Spinal cord neoplasm [Unknown]
  - Muscular weakness [Unknown]
